FAERS Safety Report 18584871 (Version 1)
Quarter: 2020Q4

REPORT INFORMATION
  Report Type: Spontaneous
  Country: US (occurrence: US)
  Receive Date: 20201203
  Receipt Date: 20201203
  Transmission Date: 20210114
  Serious: No
  Sender: FDA-Public Use
  Company Number: None

PATIENT
  Age: 66 Year
  Sex: Male
  Weight: 69.21 kg

DRUGS (8)
  1. ALBUTEROL HFA 108 MCG, INHALATION [Concomitant]
  2. LEVOTHYROXINE 25 MCG, ORAL [Concomitant]
  3. ERLEADA [Suspect]
     Active Substance: APALUTAMIDE
     Indication: PROSTATE CANCER
     Route: 048
     Dates: start: 20200918, end: 20201203
  4. TYLENOL PM EXTRA STRENGTH 500-25 MG, ORAL [Concomitant]
  5. AMLODIPINE BESYLATE 10MG, ORAL [Concomitant]
  6. VITAMIN D3 125 MCG, ORAL [Concomitant]
  7. NORCO 5-325 MG, ORAL [Concomitant]
  8. ANORO ELLIPTA 62.5-25 MCG, INHALATION [Concomitant]

REACTIONS (2)
  - Therapy cessation [None]
  - Malaise [None]

NARRATIVE: CASE EVENT DATE: 20201203
